FAERS Safety Report 23788857 (Version 2)
Quarter: 2024Q2

REPORT INFORMATION
  Report Type: Report from Study
  Country: US (occurrence: US)
  Receive Date: 20240426
  Receipt Date: 20240617
  Transmission Date: 20240715
  Serious: Yes (Hospitalization)
  Sender: FDA-Public Use
  Company Number: US-BAYER-2024A050231

PATIENT
  Age: 53 Year
  Sex: Female
  Weight: 77.098 kg

DRUGS (21)
  1. ADEMPAS [Suspect]
     Active Substance: RIOCIGUAT
     Indication: Pulmonary arterial hypertension
     Dosage: UNK
     Dates: start: 20150218
  2. ADEMPAS [Suspect]
     Active Substance: RIOCIGUAT
     Indication: Pulmonary arterial hypertension
     Dosage: 2.5 MG, TID
  3. ADEMPAS [Suspect]
     Active Substance: RIOCIGUAT
     Indication: Pulmonary arterial hypertension
     Dosage: 2.5 MG, TID
     Route: 048
     Dates: start: 20240502
  4. LETAIRIS [Concomitant]
     Active Substance: AMBRISENTAN
  5. ASCORBIC ACID [Concomitant]
     Active Substance: ASCORBIC ACID
  6. METOLAZONE [Concomitant]
     Active Substance: METOLAZONE
  7. LIPITOR [Concomitant]
     Active Substance: ATORVASTATIN CALCIUM
  8. BUMETANIDE [Concomitant]
     Active Substance: BUMETANIDE
  9. WOMEN MULTI [Concomitant]
  10. VITAMIN D2 [Concomitant]
     Active Substance: ERGOCALCIFEROL
  11. ALBUTEROL SULFATE [Concomitant]
     Active Substance: ALBUTEROL SULFATE
  12. ALLOPURINOL [Concomitant]
     Active Substance: ALLOPURINOL
  13. OXYCONTIN [Concomitant]
     Active Substance: OXYCODONE HYDROCHLORIDE
  14. UPTRAVI [Concomitant]
     Active Substance: SELEXIPAG
  15. OXYGEN [Concomitant]
     Active Substance: OXYGEN
  16. VITAMIN D3 [Concomitant]
     Active Substance: CHOLECALCIFEROL
  17. VITAMIN B12 [Concomitant]
     Active Substance: CYANOCOBALAMIN
  18. SPIRONOLACTONE [Concomitant]
     Active Substance: SPIRONOLACTONE
  19. XARELTO [Concomitant]
     Active Substance: RIVAROXABAN
  20. POTASSIUM CHLORIDE [Concomitant]
     Active Substance: POTASSIUM CHLORIDE
  21. AMBRISENTAN [Concomitant]
     Active Substance: AMBRISENTAN

REACTIONS (4)
  - Gastrointestinal disorder [None]
  - Headache [None]
  - Dizziness [None]
  - Adverse event [None]

NARRATIVE: CASE EVENT DATE: 20240401
